FAERS Safety Report 5033306-6 (Version None)
Quarter: 2006Q2

REPORT INFORMATION
  Report Type: 
  Country: None (occurrence: None)
  Receive Date: 20060511
  Receipt Date: 20060406
  Transmission Date: 20061013
  Serious: No
  Sender: FDA-Public Use
  Company Number: 200613444US

PATIENT

DRUGS (1)
  1. APIDRA [Suspect]

REACTIONS (1)
  - NAUSEA [None]
